FAERS Safety Report 6510850-3 (Version None)
Quarter: 2009Q4

REPORT INFORMATION
  Report Type: 
  Country: None (occurrence: None)
  Receive Date: 20091222
  Receipt Date: 20090116
  Transmission Date: 20100525
  Serious: No
  Sender: FDA-Public Use
  Company Number: US-ASTRAZENECA-2009UW01527

PATIENT
  Age: 62 Year
  Sex: Female

DRUGS (4)
  1. CRESTOR [Suspect]
     Dosage: UNKNOWN
     Route: 048
  2. PLAVIX [Concomitant]
  3. NEXIUM [Concomitant]
     Route: 048
  4. UNSPECIFIED [Concomitant]

REACTIONS (1)
  - BLOOD PRESSURE INCREASED [None]
